FAERS Safety Report 9600144 (Version 1)
Quarter: 2013Q4

REPORT INFORMATION
  Report Type: Spontaneous
  Country: US (occurrence: US)
  Receive Date: 20131004
  Receipt Date: 20131004
  Transmission Date: 20140711
  Serious: No
  Sender: FDA-Public Use
  Company Number: US-AMGEN-USASP2013033122

PATIENT
  Age: 59 Year
  Sex: Female
  Weight: 90.25 kg

DRUGS (22)
  1. ENBREL [Suspect]
     Indication: PRODUCT USED FOR UNKNOWN INDICATION
     Dosage: 50 MG, QWK
     Route: 058
  2. HIPREX [Concomitant]
     Dosage: 1 GM, UNK
  3. VITAMIN C                          /00008001/ [Concomitant]
     Dosage: 500 MG, UNK
  4. MULTIVITAMINS, PLAIN [Concomitant]
     Dosage: UNK
  5. CALCIUM +D                         /00944201/ [Concomitant]
     Dosage: UNK
  6. TYLENOL ARTHRITIS [Concomitant]
     Dosage: 650 MG, UNK
  7. NAPROXEN [Concomitant]
     Dosage: 500 MG, UNK
  8. TRAZODONE [Concomitant]
     Dosage: 50 MG, UNK
  9. ESTRADIOL [Concomitant]
     Dosage: 1 MG, UNK
  10. NEXIUM                             /01479302/ [Concomitant]
     Dosage: 40 MG, UNK
  11. ALDACTONE                          /00006201/ [Concomitant]
     Dosage: 100 MG, UNK
  12. FOLIC ACID [Concomitant]
     Dosage: 1 MG, UNK
  13. PLAQUENIL                          /00072602/ [Concomitant]
     Dosage: 200 MG, UNK
  14. ALLEGRA [Concomitant]
     Dosage: 60 MG, UNK
  15. SYNTHROID [Concomitant]
     Dosage: 112 MUG, UNK
  16. STOOL SOFTENER [Concomitant]
     Dosage: 100 MG, UNK
  17. ADVAIR [Concomitant]
     Dosage: 100/50, UNK
  18. SINGULAIR [Concomitant]
     Dosage: 10 MG, UNK
  19. ALBUTEROL                          /00139501/ [Concomitant]
     Dosage: 0.5 %, UNK
  20. HYDROCORTISON ACETATE [Concomitant]
     Dosage: 25 MG, UNK
  21. SPIRIVA [Concomitant]
     Dosage: UNK
  22. VENTOLIN HFA [Concomitant]
     Dosage: UNK

REACTIONS (3)
  - Bronchitis [Unknown]
  - Influenza [Unknown]
  - Gastroenteritis viral [Unknown]
